FAERS Safety Report 5579220-9 (Version None)
Quarter: 2008Q1

REPORT INFORMATION
  Report Type: 
  Country: None (occurrence: None)
  Receive Date: 20080102
  Receipt Date: 20071219
  Transmission Date: 20080703
  Serious: Yes (Hospitalization, Other)
  Sender: FDA-Public Use
  Company Number: US-ELI_LILLY_AND_COMPANY-US200709003365

PATIENT
  Sex: Female
  Weight: 45.351 kg

DRUGS (13)
  1. FORTEO [Suspect]
     Indication: OSTEOPOROSIS
     Dosage: 20 UG, DAILY (1/D)
     Dates: start: 20070101, end: 20070101
  2. FORTEO [Suspect]
     Dosage: UNK, UNK
     Dates: start: 20070101, end: 20070101
  3. FORTEO [Suspect]
     Dates: start: 20070101
  4. LOPRESSOR [Concomitant]
     Indication: HYPERTENSION
     Dosage: 50 MG, 2/D
  5. COZAAR [Concomitant]
     Indication: HYPERTENSION
     Dosage: 50 MG, UNK
  6. BUSPAR [Concomitant]
  7. LASIX [Concomitant]
     Indication: CARDIAC FAILURE CONGESTIVE
     Dosage: 40 MG, UNK
  8. COUMADIN [Concomitant]
     Indication: ANTICOAGULANT THERAPY
  9. PLAQUENIL [Concomitant]
     Dosage: 400 MG, UNK
  10. PEPCID [Concomitant]
  11. AMITRIPTYLINE HCL [Concomitant]
     Dosage: 25 MG, UNK
  12. SYNTHROID [Concomitant]
     Dosage: 50 MG, UNK
  13. ACTONEL [Concomitant]

REACTIONS (8)
  - ASTHENIA [None]
  - ATRIAL FIBRILLATION [None]
  - BACK DISORDER [None]
  - CARDIAC FAILURE CONGESTIVE [None]
  - COMPRESSION FRACTURE [None]
  - FALL [None]
  - MOBILITY DECREASED [None]
  - PAIN [None]
